FAERS Safety Report 24314887 (Version 1)
Quarter: 2024Q3

REPORT INFORMATION
  Report Type: Report from Study
  Country: AU (occurrence: AU)
  Receive Date: 20240913
  Receipt Date: 20240913
  Transmission Date: 20241016
  Serious: Yes (Disabling, Other)
  Sender: ROCHE
  Company Number: AU-ROCHE-3290932

PATIENT
  Age: 52 Year
  Sex: Female

DRUGS (6)
  1. OCREVUS [Suspect]
     Active Substance: OCRELIZUMAB
     Indication: Multiple sclerosis
     Route: 042
     Dates: start: 20230217, end: 20230217
  2. OCREVUS [Suspect]
     Active Substance: OCRELIZUMAB
     Route: 042
     Dates: start: 20230818
  3. OCREVUS [Suspect]
     Active Substance: OCRELIZUMAB
     Route: 042
  4. OCREVUS [Suspect]
     Active Substance: OCRELIZUMAB
     Route: 042
  5. AMITRIPTYLINE [Concomitant]
     Active Substance: AMITRIPTYLINE
  6. NEXIUM 24HR [Concomitant]
     Active Substance: ESOMEPRAZOLE MAGNESIUM

REACTIONS (9)
  - Balance disorder [Recovering/Resolving]
  - Pain in extremity [Recovering/Resolving]
  - Hypoaesthesia [Recovering/Resolving]
  - Fatigue [Unknown]
  - Multiple sclerosis [Unknown]
  - COVID-19 [Recovered/Resolved]
  - Animal bite [Unknown]
  - Upper respiratory tract infection [Unknown]
  - Vertigo [Unknown]

NARRATIVE: CASE EVENT DATE: 20240301
